FAERS Safety Report 12754161 (Version 1)
Quarter: 2016Q3

REPORT INFORMATION
  Report Type: Spontaneous
  Country: US (occurrence: US)
  Receive Date: 20160916
  Receipt Date: 20160916
  Transmission Date: 20161109
  Serious: No
  Sender: FDA-Public Use
  Company Number: US-AMGEN-USASP2016121068

PATIENT
  Age: 56 Year
  Sex: Female

DRUGS (1)
  1. ENBREL [Suspect]
     Active Substance: ETANERCEPT
     Indication: RHEUMATOID ARTHRITIS
     Dosage: 50 MG, UNK
     Route: 065
     Dates: end: 2015

REACTIONS (7)
  - Feeling abnormal [Unknown]
  - Back pain [Unknown]
  - Drug dose omission [Unknown]
  - Movement disorder [Unknown]
  - Osteoporosis [Unknown]
  - Arthralgia [Unknown]
  - Musculoskeletal pain [Unknown]
